FAERS Safety Report 5087583-6 (Version None)
Quarter: 2006Q3

REPORT INFORMATION
  Report Type: 
  Country: None (occurrence: None)
  Receive Date: 20060822
  Receipt Date: 20060822
  Transmission Date: 20061208
  Serious: Yes (Hospitalization)
  Sender: FDA-Public Use
  Company Number: None

PATIENT
  Age: 49 Year
  Sex: Female

DRUGS (3)
  1. METHIMAZOLE [Suspect]
     Dosage: 20MG  B.I.D.   PO
     Route: 048
     Dates: start: 20060316, end: 20060405
  2. ATENOLOL [Concomitant]
  3. ZYRTEC [Concomitant]

REACTIONS (2)
  - FEBRILE NEUTROPENIA [None]
  - GRANULOCYTOPENIA [None]
